FAERS Safety Report 10250291 (Version 1)
Quarter: 2014Q2

REPORT INFORMATION
  Report Type: Spontaneous
  Country: JP (occurrence: JP)
  Receive Date: 20140620
  Receipt Date: 20140620
  Transmission Date: 20141212
  Serious: Yes (Disabling, Other)
  Sender: FDA-Public Use
  Company Number: JP-ACTAVIS-2014-13851

PATIENT
  Age: 62 Year
  Sex: Female

DRUGS (2)
  1. ZOLEDRONIC ACID (UNKNOWN) [Suspect]
     Indication: METASTASES TO BONE
     Dosage: 4 MG, ONCE A MONTH
     Route: 042
  2. ANASTROZOLE [Concomitant]
     Indication: BREAST CANCER
     Dosage: UNK
     Route: 065

REACTIONS (2)
  - Atypical femur fracture [Not Recovered/Not Resolved]
  - Osteonecrosis of jaw [None]
